FAERS Safety Report 6196659-1 (Version None)
Quarter: 2009Q2

REPORT INFORMATION
  Report Type: 
  Country: None (occurrence: None)
  Receive Date: 20090520
  Receipt Date: 20090410
  Transmission Date: 20091009
  Serious: Yes (Other)
  Sender: FDA-Public Use
  Company Number: B0529961A

PATIENT
  Sex: Male
  Weight: 84 kg

DRUGS (4)
  1. AVANDAMET [Suspect]
     Route: 048
     Dates: start: 20061205
  2. NOVONORM [Concomitant]
     Dosage: 1MG THREE TIMES PER DAY
  3. LIPANTHYL [Concomitant]
     Dosage: 200MG PER DAY
  4. SERETIDE DISKUS [Concomitant]

REACTIONS (4)
  - CHRONIC OBSTRUCTIVE PULMONARY DISEASE [None]
  - DYSPNOEA EXERTIONAL [None]
  - ULCER [None]
  - WEIGHT INCREASED [None]
